FAERS Safety Report 9289491 (Version 1)
Quarter: 2013Q2

REPORT INFORMATION
  Report Type: Report from Study
  Country: KR (occurrence: KR)
  Receive Date: 20130514
  Receipt Date: 20130514
  Transmission Date: 20140414
  Serious: Yes (Other)
  Sender: FDA-Public Use
  Company Number: KR-ROCHE-1224304

PATIENT
  Sex: 0

DRUGS (8)
  1. RITUXIMAB [Suspect]
     Indication: DIFFUSE LARGE B-CELL LYMPHOMA
     Route: 065
  2. RITUXIMAB [Suspect]
     Indication: LYMPHOMA
  3. RITUXIMAB [Suspect]
     Indication: TRANSPLANT REJECTION
  4. RITUXIMAB [Suspect]
     Indication: NEUROMYELITIS OPTICA
  5. RITUXIMAB [Suspect]
     Indication: MULTIPLE SCLEROSIS
  6. RITUXIMAB [Suspect]
     Indication: GRAFT VERSUS HOST DISEASE
  7. RITUXIMAB [Suspect]
     Indication: AUTOIMMUNE THROMBOCYTOPENIA
  8. RITUXIMAB [Suspect]
     Indication: APLASTIC ANAEMIA

REACTIONS (4)
  - Hepatitis [Unknown]
  - Hepatitis B [Unknown]
  - Hepatitis A [Unknown]
  - Sepsis [Unknown]
